FAERS Safety Report 6012208-2 (Version None)
Quarter: 2008Q4

REPORT INFORMATION
  Report Type: 
  Country: None (occurrence: None)
  Receive Date: 20081216
  Receipt Date: 20071214
  Transmission Date: 20090506
  Serious: Yes (Other)
  Sender: FDA-Public Use
  Company Number: US-WYE-H01814707

PATIENT
  Age: 57 Year
  Sex: Male
  Weight: 86.26 kg

DRUGS (7)
  1. EFFEXOR XR [Suspect]
     Indication: ANXIETY
     Dosage: 75 MG 1X PER 1 DAY ; 37.5 MG 1X PER 1 DAY
     Dates: start: 20071101, end: 20071101
  2. EFFEXOR XR [Suspect]
     Indication: DEPRESSION
     Dosage: 75 MG 1X PER 1 DAY ; 37.5 MG 1X PER 1 DAY
     Dates: start: 20071101, end: 20071101
  3. EFFEXOR XR [Suspect]
     Indication: ANXIETY
     Dosage: 75 MG 1X PER 1 DAY ; 37.5 MG 1X PER 1 DAY
     Dates: start: 20071101, end: 20071207
  4. EFFEXOR XR [Suspect]
     Indication: DEPRESSION
     Dosage: 75 MG 1X PER 1 DAY ; 37.5 MG 1X PER 1 DAY
     Dates: start: 20071101, end: 20071207
  5. ALLEGRA [Concomitant]
  6. HYDROCHLOROTHIAZIDE [Concomitant]
  7. GEMFIBROZIL [Concomitant]

REACTIONS (1)
  - CONVULSION [None]
